FAERS Safety Report 20797970 (Version 1)
Quarter: 2022Q2

REPORT INFORMATION
  Report Type: Spontaneous
  Country: DE (occurrence: DE)
  Receive Date: 20220506
  Receipt Date: 20220506
  Transmission Date: 20220720
  Serious: Yes (Hospitalization, Other)
  Sender: FDA-Public Use
  Company Number: DE-DCGMA-22197638

PATIENT
  Age: 29 Year
  Sex: Male
  Weight: 70 kg

DRUGS (2)
  1. ALEMTUZUMAB [Suspect]
     Active Substance: ALEMTUZUMAB
     Indication: Multiple sclerosis
     Dosage: 12 MG
     Route: 042
  2. CARBIMAZOLE [Concomitant]
     Active Substance: CARBIMAZOLE
     Indication: Hyperthyroidism
     Dosage: UNK
     Route: 048
     Dates: start: 2019

REACTIONS (2)
  - Chronic eosinophilic leukaemia [Unknown]
  - Hypereosinophilic syndrome [Unknown]

NARRATIVE: CASE EVENT DATE: 20211221
